FAERS Safety Report 5740079-8 (Version None)
Quarter: 2008Q2

REPORT INFORMATION
  Report Type: 
  Country: None (occurrence: None)
  Receive Date: 20080513
  Receipt Date: 20080507
  Transmission Date: 20081010
  Serious: Yes (Hospitalization)
  Sender: FDA-Public Use
  Company Number: RENA-1000076

PATIENT
  Age: 83 Year
  Sex: Male

DRUGS (7)
  1. RENAGEL [Suspect]
     Indication: HYPERPHOSPHATAEMIA
     Dosage: 1 G, TID, ORAL
     Route: 048
     Dates: start: 20031201, end: 20080319
  2. CINACALCET HYDROCHLORIDE (CINACALCET HYDROCHLORIDE) TABLET [Suspect]
     Indication: HYPERPARATHYROIDISM SECONDARY
     Dosage: 25 MG, QD, ORAL
     Route: 048
     Dates: start: 20080125, end: 20080319
  3. ALUMINIUM HYDROXIDE GEL, DRIED (ALUMINIUM HYDROXIDE GEL, DRIED) [Concomitant]
  4. MAXACALCITOL (MAXACALCITOL) [Concomitant]
  5. NICORANDIL (NICORANDIL) [Concomitant]
  6. ASPIRIN [Concomitant]
  7. AMEZINIUM METILSULFATE (AMEZINIUM METILSULFATE) [Concomitant]

REACTIONS (7)
  - BLOOD ALKALINE PHOSPHATASE INCREASED [None]
  - BLOOD POTASSIUM INCREASED [None]
  - COLONIC STENOSIS [None]
  - DIVERTICULITIS [None]
  - HYPOTENSION [None]
  - ILEUS [None]
  - INTESTINAL OBSTRUCTION [None]
